FAERS Safety Report 5074489-1 (Version None)
Quarter: 2006Q3

REPORT INFORMATION
  Report Type: 
  Country: None (occurrence: None)
  Receive Date: 20060714
  Receipt Date: 20060323
  Transmission Date: 20061208
  Serious: No
  Sender: FDA-Public Use
  Company Number: 2006SP001354

PATIENT
  Age: 64 Year
  Sex: Male
  Weight: 95.2554 kg

DRUGS (8)
  1. LUNESTA [Suspect]
     Indication: INSOMNIA
     Dosage: SEE IMAGE
     Route: 048
     Dates: start: 20050101, end: 20060101
  2. LUNESTA [Suspect]
     Indication: INSOMNIA
     Dosage: SEE IMAGE
     Route: 048
     Dates: start: 20060101
  3. LASIX [Concomitant]
  4. LOTENSIN [Concomitant]
  5. SYNTHROID [Concomitant]
  6. ZAROXOLYN [Concomitant]
  7. K-DUR 10 [Concomitant]
  8. MAGNESIUM [Concomitant]

REACTIONS (1)
  - DYSGEUSIA [None]
